FAERS Safety Report 9800098 (Version 1)
Quarter: 2014Q1

REPORT INFORMATION
  Report Type: Spontaneous
  Country: US (occurrence: US)
  Receive Date: 20140106
  Receipt Date: 20140106
  Transmission Date: 20141002
  Serious: No
  Sender: FDA-Public Use
  Company Number: US-GILEAD-2010-0032530

PATIENT
  Age: 65 Year
  Sex: Female
  Weight: 70.31 kg

DRUGS (8)
  1. LETAIRIS [Suspect]
     Indication: PULMONARY ARTERIAL HYPERTENSION
     Route: 048
     Dates: start: 20090608
  2. ATENOLOL [Concomitant]
  3. ASPIRIN [Concomitant]
  4. HCTZ [Concomitant]
  5. MOVE FREE FOR JOINTS [Concomitant]
  6. LORAZEPAM [Concomitant]
  7. MAGNESIUM [Concomitant]
  8. CALCIUM [Concomitant]

REACTIONS (1)
  - Dizziness [Unknown]
